FAERS Safety Report 18376266 (Version 1)
Quarter: 2020Q4

REPORT INFORMATION
  Report Type: Spontaneous
  Country: US (occurrence: US)
  Receive Date: 20201011
  Receipt Date: 20201011
  Transmission Date: 20210114
  Serious: No
  Sender: FDA-Public Use
  Company Number: None

PATIENT
  Age: 57 Year
  Sex: Female
  Weight: 60.75 kg

DRUGS (10)
  1. CEPHALEXIN 500 MG CAP LUPI, LUPIN, GENERIC FOR KEFLEX 500 MG CAP SHIO [Suspect]
     Active Substance: CEPHALEXIN
     Indication: URINARY TRACT INFECTION
     Route: 048
     Dates: start: 20201009, end: 20201010
  2. VITAMIN B12 [Concomitant]
     Active Substance: CYANOCOBALAMIN
  3. VIACTIV CHEWS [Concomitant]
  4. VITAMIN D [Concomitant]
     Active Substance: VITAMIN D NOS
  5. SPIRONOLACTONE. [Concomitant]
     Active Substance: SPIRONOLACTONE
  6. VAGIFEM [Concomitant]
     Active Substance: ESTRADIOL
  7. CBD CAPSULES [Concomitant]
     Active Substance: CANNABIDIOL\HERBALS
  8. OCCUVITE VITAMIN [Concomitant]
  9. FLORAGEN PROBIOTIC [Concomitant]
  10. ONE-A-DAY MULTIVITAMIN [Concomitant]

REACTIONS (7)
  - Ear pruritus [None]
  - Erythema [None]
  - Hypersensitivity [None]
  - Pruritus [None]
  - Rash papular [None]
  - Rash macular [None]
  - Discomfort [None]

NARRATIVE: CASE EVENT DATE: 20201011
